FAERS Safety Report 17080251 (Version 1)
Quarter: 2019Q4

REPORT INFORMATION
  Report Type: Spontaneous
  Country: FR (occurrence: FR)
  Receive Date: 20191127
  Receipt Date: 20191127
  Transmission Date: 20200122
  Serious: Yes (Hospitalization)
  Sender: FDA-Public Use
  Company Number: FR-TEVA-2019-FR-1141543

PATIENT
  Age: 76 Year
  Sex: Female
  Weight: 77 kg

DRUGS (5)
  1. FLAGYL [Suspect]
     Active Substance: METRONIDAZOLE\METRONIDAZOLE HYDROCHLORIDE
     Indication: AEROMONAS INFECTION
     Dosage: 1000MG/ DAY
     Route: 048
     Dates: start: 20190718, end: 20190724
  2. TEMERITDUO 5 MG/12,5 MG, COMPRIME PELLICULE [Suspect]
     Active Substance: HYDROCHLOROTHIAZIDE\NEBIVOLOL HYDROCHLORIDE
     Dosage: 1 DF 5MG/ 12.5MG / DAY
     Route: 048
     Dates: end: 20190722
  3. METFORMINE [Suspect]
     Active Substance: METFORMIN HYDROCHLORIDE
     Indication: DIABETES MELLITUS
     Dosage: 2G/ DAY
     Route: 048
     Dates: end: 20190722
  4. OFLOCET [Suspect]
     Active Substance: OFLOXACIN
     Indication: AEROMONAS INFECTION
     Dosage: 2 DF/ DAY
     Route: 048
     Dates: start: 20190718, end: 20190724
  5. TRANDOLAPRIL. [Suspect]
     Active Substance: TRANDOLAPRIL
     Indication: HYPERTENSION
     Dosage: 2MG/ DAY
     Route: 048
     Dates: end: 20190722

REACTIONS (2)
  - Diarrhoea [Recovered/Resolved]
  - Acute kidney injury [Recovered/Resolved]

NARRATIVE: CASE EVENT DATE: 20190720
